FAERS Safety Report 4265913-2 (Version None)
Quarter: 2004Q1

REPORT INFORMATION
  Report Type: 
  Country: None (occurrence: None)
  Receive Date: 20040106
  Receipt Date: 20031225
  Transmission Date: 20041129
  Serious: Yes (Hospitalization)
  Sender: FDA-Public Use
  Company Number: JP-JNJFOC-20031205152

PATIENT
  Age: 27 Year
  Sex: Male
  Weight: 57.7 kg

DRUGS (3)
  1. REMICADE [Suspect]
     Indication: CROHN'S DISEASE
     Dosage: 5 MG/KG, 1 IN 1 AS NECESSARY, INTRAVENOUS DRIP
     Route: 041
     Dates: start: 20020911, end: 20020911
  2. SULFASALAZINE [Concomitant]
  3. TOTAL PARENTERAL NUTRITION (UNKNOWN) POLYVINYL ALCOHOL [Concomitant]

REACTIONS (2)
  - POST PROCEDURAL COMPLICATION [None]
  - SUTURE RUPTURE [None]
